FAERS Safety Report 7799096-9 (Version None)
Quarter: 2011Q4

REPORT INFORMATION
  Report Type: 
  Country: None (occurrence: None)
  Receive Date: 20111006
  Receipt Date: 20110928
  Transmission Date: 20120403
  Serious: Yes (Life-Threatening, Hospitalization, Other)
  Sender: FDA-Public Use
  Company Number: JP-PFIZER INC-2011209037

PATIENT
  Age: 69 Year
  Sex: Female
  Weight: 51.5 kg

DRUGS (16)
  1. DIAZEPAM [Suspect]
     Indication: PAIN
     Dosage: 5 MG, 1X/DAY
     Route: 048
     Dates: start: 20101023
  2. ONE-ALPHA [Concomitant]
     Indication: OSTEOPOROSIS
     Dosage: 0.5 UG, 1X/DAY
     Route: 048
     Dates: start: 20110502
  3. PLATIBIT [Concomitant]
     Dosage: 0.25 MG, 1X/DAY
     Route: 048
  4. METOPROLOL TARTRATE [Concomitant]
     Dosage: 20 MG, 2X/DAY
     Route: 048
  5. LANSOPRAZOLE [Concomitant]
     Dosage: 15 MG, 1X/DAY
     Route: 048
  6. VOGLIBOSE [Concomitant]
     Dosage: 0.2 UNK, 3X/DAY
     Route: 048
  7. LIMAPROST [Concomitant]
     Dosage: 10 UNK, 3X/DAY
     Route: 048
  8. PARULEON [Concomitant]
     Dosage: 0.25 UNK, 1X/DAY
     Route: 048
  9. PROMACTA [Concomitant]
     Dosage: 75 MG, 2X/DAY
     Route: 048
  10. HALCION [Concomitant]
     Route: 048
  11. LYRICA [Suspect]
     Indication: NEURALGIA
     Dosage: 50 MG, 1X/DAY
     Route: 048
     Dates: start: 20110809, end: 20110901
  12. CALCIUM CARBONATE [Concomitant]
     Dosage: 500 MG, 3X/DAY
     Route: 048
  13. ELCATONIN [Concomitant]
     Indication: PAIN
     Dosage: 20 IU, WEEKLY
     Route: 058
     Dates: start: 20110502
  14. TOCOPHERYL NICOTINATE [Concomitant]
     Indication: ARTERIOSCLEROSIS
     Dosage: 200 MG, 1X/DAY
     Route: 048
     Dates: start: 20101023
  15. PLAVIX [Concomitant]
     Dosage: 75 MG, 1X/DAY
     Route: 048
  16. ASPIRIN [Concomitant]
     Dosage: 100 MG, 1X/DAY
     Route: 048

REACTIONS (5)
  - HYPOGLYCAEMIA [None]
  - HYPERCALCAEMIA [None]
  - RESPIRATORY DEPRESSION [None]
  - SOMNOLENCE [None]
  - ALTERED STATE OF CONSCIOUSNESS [None]
